FAERS Safety Report 6295928-4 (Version None)
Quarter: 2009Q3

REPORT INFORMATION
  Report Type: 
  Country: None (occurrence: None)
  Receive Date: 20090804
  Receipt Date: 20090727
  Transmission Date: 20100115
  Serious: Yes (Other)
  Sender: FDA-Public Use
  Company Number: US-AMGEN-QUU357491

PATIENT
  Sex: Female

DRUGS (3)
  1. ENBREL [Suspect]
     Indication: PSORIATIC ARTHROPATHY
     Dates: start: 20070101, end: 20090601
  2. ENBREL [Suspect]
     Indication: PSORIASIS
  3. METFORMIN [Concomitant]

REACTIONS (1)
  - HEPATIC STEATOSIS [None]
